FAERS Safety Report 11265157 (Version 1)
Quarter: 2015Q3

REPORT INFORMATION
  Report Type: Spontaneous
  Country: US (occurrence: None)
  Receive Date: 20150710
  Receipt Date: 20150710
  Transmission Date: 20151125
  Serious: No
  Sender: FDA-Public Use
  Company Number: None

PATIENT
  Age: 28 Year
  Sex: Female
  Weight: 102.06 kg

DRUGS (1)
  1. LEVOTHYROXINE. [Suspect]
     Active Substance: LEVOTHYROXINE
     Indication: HYPOTHYROIDISM
     Dosage: SYNTHROID 50MCG 1 DAILY ORAL
     Route: 048

REACTIONS (3)
  - Pyrexia [None]
  - Malaise [None]
  - Rash [None]

NARRATIVE: CASE EVENT DATE: 20150407
